FAERS Safety Report 5227887-7 (Version None)
Quarter: 2007Q1

REPORT INFORMATION
  Report Type: 
  Country: None (occurrence: None)
  Receive Date: 20070202
  Receipt Date: 20070123
  Transmission Date: 20070707
  Serious: Yes (Other)
  Sender: FDA-Public Use
  Company Number: AU-PFIZER INC-2006150554

PATIENT
  Sex: Female
  Weight: 85 kg

DRUGS (12)
  1. LYRICA [Suspect]
     Indication: NEURALGIA
     Route: 048
     Dates: start: 20061125, end: 20061126
  2. NEURONTIN [Suspect]
     Route: 048
  3. TRAMADOL HCL [Concomitant]
     Dosage: DAILY DOSE:400MG
     Route: 048
  4. ENDEP [Concomitant]
     Route: 048
  5. EPILIM [Concomitant]
     Route: 048
  6. LEVOTHYROXINE SODIUM [Concomitant]
     Route: 048
  7. OGEN [Concomitant]
  8. ACETAMINOPHEN W/ CODEINE [Concomitant]
  9. OSTEO [Concomitant]
  10. COSOPT [Concomitant]
  11. LUMIGAN [Concomitant]
  12. ANAPROX [Concomitant]

REACTIONS (7)
  - DEPRESSION [None]
  - DYSARTHRIA [None]
  - FATIGUE [None]
  - HEADACHE [None]
  - PAIN [None]
  - SPEECH DISORDER [None]
  - WEIGHT BEARING DIFFICULTY [None]
